FAERS Safety Report 7958300-4 (Version None)
Quarter: 2011Q4

REPORT INFORMATION
  Report Type: 
  Country: None (occurrence: None)
  Receive Date: 20111205
  Receipt Date: 20111123
  Transmission Date: 20120403
  Serious: Yes (Other)
  Sender: FDA-Public Use
  Company Number: CH-COVIDIEN/TYCO HEALTHCARE/MALLINCKRODT-T201102783

PATIENT
  Age: 29 Year
  Sex: Female

DRUGS (3)
  1. METHYLIN [Suspect]
     Dosage: 80 MG, SINGLE
     Route: 045
  2. METHYLIN [Suspect]
     Dosage: 40-60 MG QD OVER THREE WEEKS
     Route: 048
  3. METHYLIN [Suspect]
     Dosage: 20 MG, QD
     Route: 048

REACTIONS (5)
  - INTENTIONAL OVERDOSE [None]
  - DRUG ABUSE [None]
  - TOXICITY TO VARIOUS AGENTS [None]
  - ANXIETY [None]
  - INCORRECT ROUTE OF DRUG ADMINISTRATION [None]
